FAERS Safety Report 6073623-4 (Version None)
Quarter: 2009Q1

REPORT INFORMATION
  Report Type: 
  Country: None (occurrence: None)
  Receive Date: 20090211
  Receipt Date: 20090130
  Transmission Date: 20090719
  Serious: Yes (Life-Threatening)
  Sender: FDA-Public Use
  Company Number: JP-PFIZER INC-2009164460

PATIENT

DRUGS (4)
  1. NORVASC [Suspect]
     Indication: HYPERTENSION
     Dosage: 5 MG, 1X/DAY
     Route: 048
     Dates: end: 20090130
  2. GASCON [Concomitant]
     Dosage: UNK
     Route: 048
     Dates: start: 20080508, end: 20090130
  3. MIYARISAN BM [Concomitant]
     Dosage: UNK
     Route: 048
     Dates: start: 20080508, end: 20090130
  4. SELTOUCH [Concomitant]
     Route: 062
     Dates: start: 20080920, end: 20090130

REACTIONS (1)
  - AORTIC DISSECTION [None]
